FAERS Safety Report 8525815 (Version 6)
Quarter: 2016Q4

REPORT INFORMATION
  Report Type: Report from Study
  Country: US (occurrence: US)
  Receive Date: 20120423
  Receipt Date: 20161018
  Transmission Date: 20170207
  Serious: Yes (Other)
  Sender: FDA-Public Use
  Company Number: US-ROCHE-1058754

PATIENT
  Age: 44 Year
  Sex: Female
  Weight: 63 kg

DRUGS (12)
  1. VISMODEGIB [Suspect]
     Active Substance: VISMODEGIB
     Dosage: COURSE 2
     Route: 048
     Dates: start: 20120319
  2. VISMODEGIB [Suspect]
     Active Substance: VISMODEGIB
     Indication: CHONDROSARCOMA
     Dosage: INTERRUPTED ON 26/MAR/2012, TOTAL DOSE RECEIVED 4200 MG.
     Route: 048
     Dates: start: 20120220
  3. VISMODEGIB [Suspect]
     Active Substance: VISMODEGIB
     Dosage: COURSE 4
     Route: 048
     Dates: start: 20120514
  4. ACTISKENAN [Suspect]
     Active Substance: MORPHINE SULFATE
     Indication: PRODUCT USED FOR UNKNOWN INDICATION
     Route: 065
  5. ACUPAN [Suspect]
     Active Substance: NEFOPAM HYDROCHLORIDE
     Indication: PRODUCT USED FOR UNKNOWN INDICATION
     Route: 065
  6. PARACETAMOL [Suspect]
     Active Substance: ACETAMINOPHEN
     Indication: PRODUCT USED FOR UNKNOWN INDICATION
     Route: 065
  7. VISMODEGIB [Suspect]
     Active Substance: VISMODEGIB
     Dosage: COURSE 3
     Route: 048
     Dates: start: 20120416
  8. IXPRIM [Concomitant]
     Active Substance: ACETAMINOPHEN\TRAMADOL HYDROCHLORIDE
  9. DUPHALAC (FRANCE) [Suspect]
     Active Substance: LACTULOSE
     Indication: PRODUCT USED FOR UNKNOWN INDICATION
     Route: 065
  10. SKENAN [Suspect]
     Active Substance: MORPHINE SULFATE
     Indication: PRODUCT USED FOR UNKNOWN INDICATION
     Route: 065
  11. LYRICA [Suspect]
     Active Substance: PREGABALIN
     Indication: PRODUCT USED FOR UNKNOWN INDICATION
     Route: 065
  12. PRIMPERAN [Concomitant]
     Active Substance: METOCLOPRAMIDE HYDROCHLORIDE

REACTIONS (3)
  - Gamma-glutamyltransferase increased [Not Recovered/Not Resolved]
  - Aspartate aminotransferase increased [Not Recovered/Not Resolved]
  - Alanine aminotransferase increased [Not Recovered/Not Resolved]

NARRATIVE: CASE EVENT DATE: 20120326
